FAERS Safety Report 13545338 (Version 1)
Quarter: 2017Q2

REPORT INFORMATION
  Report Type: Spontaneous
  Country: US (occurrence: US)
  Receive Date: 20170513
  Receipt Date: 20170513
  Transmission Date: 20170830
  Serious: Yes (Other)
  Sender: FDA-Public Use
  Company Number: None

PATIENT
  Age: 29 Year
  Sex: Female
  Weight: 50 kg

DRUGS (3)
  1. MEISSO HAIR SERUM [Concomitant]
  2. HAIRAID [Concomitant]
  3. ACCUTANE [Suspect]
     Active Substance: ISOTRETINOIN
     Indication: ACNE
     Route: 048
     Dates: start: 20130101, end: 20130331

REACTIONS (2)
  - Alopecia [None]
  - Dry skin [None]

NARRATIVE: CASE EVENT DATE: 20130730
